FAERS Safety Report 21481905 (Version 2)
Quarter: 2022Q4

REPORT INFORMATION
  Report Type: Spontaneous
  Country: JP (occurrence: JP)
  Receive Date: 20221020
  Receipt Date: 20221107
  Transmission Date: 20230113
  Serious: Yes (Other)
  Sender: FDA-Public Use
  Company Number: JP-SAKK-2022SA426043AA

PATIENT
  Age: 50 Year
  Sex: Female

DRUGS (2)
  1. DUPIXENT [Suspect]
     Active Substance: DUPILUMAB
     Indication: Chronic eosinophilic rhinosinusitis
     Dosage: 300 MG, QOW
     Route: 058
     Dates: start: 20211202, end: 20220302
  2. DUPIXENT [Suspect]
     Active Substance: DUPILUMAB
     Indication: Asthma

REACTIONS (3)
  - Eosinophilic pneumonia [Recovering/Resolving]
  - Pyrexia [Recovering/Resolving]
  - Rash pruritic [Recovered/Resolved]

NARRATIVE: CASE EVENT DATE: 20211228
